FAERS Safety Report 9820004 (Version 1)
Quarter: 2013Q4

REPORT INFORMATION
  Report Type: Spontaneous
  Country: US (occurrence: None)
  Receive Date: 20131223
  Receipt Date: 20131223
  Transmission Date: 20140711
  Serious: No
  Sender: FDA-Public Use
  Company Number: 218284

PATIENT
  Age: 74 Year
  Sex: Female

DRUGS (1)
  1. PICATO [Suspect]
     Indication: PRECANCEROUS SKIN LESION
     Dosage: (1 IN 1 D), TOPICAL
     Route: 061
     Dates: start: 20120629, end: 20120701

REACTIONS (8)
  - Fatigue [None]
  - Skin tightness [None]
  - Application site erythema [None]
  - Application site vesicles [None]
  - Application site irritation [None]
  - Application site pruritus [None]
  - Application site exfoliation [None]
  - Circumoral oedema [None]
